FAERS Safety Report 6541785-8 (Version None)
Quarter: 2010Q1

REPORT INFORMATION
  Report Type: 
  Country: None (occurrence: None)
  Receive Date: 20100119
  Receipt Date: 20100107
  Transmission Date: 20100710
  Serious: Yes (Other)
  Sender: FDA-Public Use
  Company Number: PHEH2008US04392

PATIENT
  Sex: Male

DRUGS (21)
  1. AREDIA [Suspect]
     Dates: start: 20011201, end: 20040501
  2. INSULIN [Concomitant]
  3. DEXAMETHASONE [Concomitant]
     Dosage: 4 MG TABLETS
  4. METRONIDAZOLE [Concomitant]
     Dosage: 500 MG TABLETS
  5. FUROSEMIDE [Concomitant]
     Dosage: 20 MG
  6. PENICILLIN VK [Concomitant]
     Dosage: UNK
  7. ZYMAR [Concomitant]
     Dosage: UNK
  8. AMOXICILLIN [Concomitant]
     Dosage: %)) MG TABLETS
  9. OMNICEF [Suspect]
     Dosage: 300 MG CAPSULES
  10. VIOXX [Concomitant]
     Dosage: 25 MG
  11. PROCHLORPERAZINE [Concomitant]
     Dosage: 10 MG
  12. AMOXICILINA CLAV ^GEMINIS^ [Concomitant]
     Dosage: 125 MG
  13. GABAPENTIN [Concomitant]
     Dosage: 300 MG
  14. VIAGRA [Concomitant]
     Dosage: 50 MG
  15. DECADRON                                /CAN/ [Concomitant]
     Dosage: 4 MG, Q6H
     Route: 048
  16. LORTAB [Concomitant]
     Dosage: 5 MG, UNK
  17. AUGMENTIN                               /SCH/ [Concomitant]
     Dosage: 875 MG, BID
     Route: 048
  18. ACTOS [Concomitant]
     Dosage: 45 MG, UNK
     Route: 048
  19. NEURONTIN [Concomitant]
     Dosage: 600 MG, TID
     Route: 048
  20. CLINDAMYCIN [Concomitant]
     Dosage: 900 MG, UNK
  21. PEROXIDE [Concomitant]
     Dosage: 20 ML, BID SWISH AND SPIT
     Route: 048

REACTIONS (14)
  - ANXIETY [None]
  - DEBRIDEMENT [None]
  - DENTAL CARIES [None]
  - INFECTION [None]
  - INJURY [None]
  - JAW FRACTURE [None]
  - JAW OPERATION [None]
  - OSTEONECROSIS [None]
  - PAIN IN JAW [None]
  - PATHOLOGICAL FRACTURE [None]
  - SEQUESTRECTOMY [None]
  - SPEECH DISORDER [None]
  - TOOTH EXTRACTION [None]
  - TOOTHACHE [None]
